FAERS Safety Report 19648799 (Version 2)
Quarter: 2021Q3

REPORT INFORMATION
  Report Type: Report from Study
  Country: US (occurrence: US)
  Receive Date: 20210802
  Receipt Date: 20210805
  Transmission Date: 20211014
  Serious: Yes (Other)
  Sender: FDA-Public Use
  Company Number: US-EXELIXIS-CABO-21040960

PATIENT
  Sex: Male

DRUGS (1)
  1. CABOMETYX [Suspect]
     Active Substance: CABOZANTINIB S-MALATE
     Indication: HEPATIC CANCER
     Dosage: 40 MG, QD
     Route: 048
     Dates: start: 20210506

REACTIONS (6)
  - Dry mouth [Unknown]
  - Constipation [Unknown]
  - Peripheral swelling [Unknown]
  - Fatigue [Unknown]
  - Haemorrhage [Unknown]
  - Pain [Unknown]
